FAERS Safety Report 10160134 (Version 1)
Quarter: 2014Q2

REPORT INFORMATION
  Report Type: Spontaneous
  Country: US (occurrence: None)
  Receive Date: 20140507
  Receipt Date: 20140507
  Transmission Date: 20141212
  Serious: No
  Sender: FDA-Public Use
  Company Number: None

PATIENT
  Age: 82 Year
  Sex: Female
  Weight: 68.04 kg

DRUGS (7)
  1. METROPROLOL SUCCINATE ER [Suspect]
     Indication: HYPERTENSION
     Route: 048
     Dates: end: 20140324
  2. ACTOS 15MG [Suspect]
  3. PLAVIX [Suspect]
  4. LIPITOR [Suspect]
  5. PRILOSEC [Suspect]
  6. FISH OIL [Concomitant]
  7. CITRACAL WITH VITAMIN D+3 [Concomitant]

REACTIONS (2)
  - Pruritus [None]
  - Rash [None]
